FAERS Safety Report 6371998-X (Version None)
Quarter: 2009Q3

REPORT INFORMATION
  Report Type: 
  Country: None (occurrence: None)
  Receive Date: 20090917
  Receipt Date: 20090904
  Transmission Date: 20100115
  Serious: Yes (Hospitalization)
  Sender: FDA-Public Use
  Company Number: ADR16532009

PATIENT
  Age: 79 Year
  Sex: Female

DRUGS (9)
  1. CITALOPRAM HYDROBROMIDE [Suspect]
     Indication: HYPERTENSION
     Dosage: 20 MG/DAY, ORAL
     Route: 048
  2. BENDROFLUMETHIAZIDE [Concomitant]
  3. ALBUTEROL [Concomitant]
  4. SERETIDE [Concomitant]
  5. TAMOXIFEN CITRATE [Concomitant]
  6. DIPYRIDAMOLE [Concomitant]
  7. AMLODIPINE [Concomitant]
  8. LISINOPRIL [Concomitant]
  9. SIMVASTATIN [Concomitant]

REACTIONS (3)
  - BLOOD SODIUM DECREASED [None]
  - DEHYDRATION [None]
  - DRUG WITHDRAWAL SYNDROME [None]
